FAERS Safety Report 5328146-4 (Version None)
Quarter: 2007Q2

REPORT INFORMATION
  Report Type: 
  Country: None (occurrence: None)
  Receive Date: 20070514
  Receipt Date: 20070502
  Transmission Date: 20071010
  Serious: Yes (Disabling, Other)
  Sender: FDA-Public Use
  Company Number: US-GDF-0714907

PATIENT
  Age: 50 Year
  Weight: 54.4316 kg

DRUGS (1)
  1. METROGEL [Suspect]
     Indication: ROSACEA
     Dosage: 1 APP BID TP
     Route: 061
     Dates: start: 19980101

REACTIONS (5)
  - BALANCE DISORDER [None]
  - HYPOAESTHESIA [None]
  - NEUROPATHY [None]
  - PARAESTHESIA [None]
  - SKIN DISORDER [None]
